FAERS Safety Report 15648897 (Version 4)
Quarter: 2022Q4

REPORT INFORMATION
  Report Type: Report from Study
  Country: US (occurrence: US)
  Receive Date: 20181122
  Receipt Date: 20221215
  Transmission Date: 20230112
  Serious: Yes (Death, Other)
  Sender: FDA-Public Use
  Company Number: US-ACADIA PHARMACEUTICALS INC.-ACA-2018-010614

PATIENT
  Age: 68 Year
  Sex: Female

DRUGS (34)
  1. NUPLAZID [Suspect]
     Active Substance: PIMAVANSERIN TARTRATE
     Indication: Hallucination
     Dosage: 34 MG, QD
     Route: 048
     Dates: start: 20181016
  2. NUPLAZID [Suspect]
     Active Substance: PIMAVANSERIN TARTRATE
     Indication: Delusion
  3. NUPLAZID [Suspect]
     Active Substance: PIMAVANSERIN TARTRATE
     Indication: Parkinson^s disease psychosis
  4. NUPLAZID [Suspect]
     Active Substance: PIMAVANSERIN TARTRATE
     Indication: Parkinson^s disease
  5. OZEMPIC [Concomitant]
     Active Substance: SEMAGLUTIDE
  6. OXYGEN [Concomitant]
     Active Substance: OXYGEN
  7. JANUVIA [Concomitant]
     Active Substance: SITAGLIPTIN PHOSPHATE
  8. LOPERAMIDE HYDROCHLORIDE [Concomitant]
     Active Substance: LOPERAMIDE HYDROCHLORIDE
  9. ZADITOR [Concomitant]
     Active Substance: KETOTIFEN FUMARATE
  10. GAS-X [Concomitant]
     Active Substance: DIMETHICONE
  11. LANTUS [Concomitant]
     Active Substance: INSULIN GLARGINE
  12. DULOXETINE [Concomitant]
     Active Substance: DULOXETINE
  13. GABAPENTIN [Concomitant]
     Active Substance: GABAPENTIN
  14. ALLOPURINOL [Concomitant]
     Active Substance: ALLOPURINOL
  15. MELATONIN [Concomitant]
     Active Substance: MELATONIN
  16. LATANOPROST [Concomitant]
     Active Substance: LATANOPROST
  17. COLACE [Concomitant]
     Active Substance: DOCUSATE SODIUM
  18. OMEGA-3 FATTY ACIDS [Concomitant]
     Active Substance: OMEGA-3 FATTY ACIDS
  19. FUROSEMIDE [Concomitant]
     Active Substance: FUROSEMIDE
  20. SPIRONOLACTONE [Concomitant]
     Active Substance: SPIRONOLACTONE
  21. CARBIDOPA [Concomitant]
     Active Substance: CARBIDOPA
  22. ASCORBIC ACID\CRANBERRY [Concomitant]
     Active Substance: ASCORBIC ACID\CRANBERRY
  23. SINEMET [Concomitant]
     Active Substance: CARBIDOPA\LEVODOPA
  24. MONTELUKAST [Concomitant]
     Active Substance: MONTELUKAST SODIUM
  25. TRAVATAN [Concomitant]
     Active Substance: TRAVOPROST
  26. TUMS [Concomitant]
     Active Substance: CALCIUM CARBONATE
  27. NOVOLOG [Concomitant]
     Active Substance: INSULIN ASPART
  28. FLOVENT [Concomitant]
     Active Substance: FLUTICASONE PROPIONATE
  29. BUPROPION [Concomitant]
     Active Substance: BUPROPION
  30. ASPIRIN [Concomitant]
     Active Substance: ASPIRIN
  31. BENADRYL [Concomitant]
     Active Substance: DIPHENHYDRAMINE HYDROCHLORIDE
  32. LEVOTHYROXINE [Concomitant]
     Active Substance: LEVOTHYROXINE
  33. ALEVE [Concomitant]
     Active Substance: NAPROXEN SODIUM
  34. GALANTAMINE [Concomitant]
     Active Substance: GALANTAMINE

REACTIONS (4)
  - Death [Fatal]
  - Feeling drunk [Not Recovered/Not Resolved]
  - Dizziness [Not Recovered/Not Resolved]
  - Hypokinesia [Not Recovered/Not Resolved]

NARRATIVE: CASE EVENT DATE: 20181001
